FAERS Safety Report 25850705 (Version 3)
Quarter: 2025Q4

REPORT INFORMATION
  Report Type: Other
  Country: GB (occurrence: GB)
  Receive Date: 20250926
  Receipt Date: 20251112
  Transmission Date: 20260118
  Serious: Yes (Hospitalization, Other)
  Sender: STRIDES
  Company Number: GB-AUROBINDO-AUR-APL-2025-041944

PATIENT
  Age: 70 Year
  Sex: Female

DRUGS (14)
  1. FUROSEMIDE [Suspect]
     Active Substance: FUROSEMIDE
     Indication: Diuretic therapy
     Dosage: TABLET
     Route: 048
     Dates: end: 20250711
  2. AMLODIPINE [Suspect]
     Active Substance: AMLODIPINE BESYLATE
     Indication: Diuretic therapy
     Dosage: UNK
     Route: 048
     Dates: end: 20250801
  3. AMLODIPINE [Suspect]
     Active Substance: AMLODIPINE BESYLATE
     Indication: Blood pressure measurement
     Dosage: UNK
     Route: 048
     Dates: start: 202508
  4. QUETIAPINE [Suspect]
     Active Substance: QUETIAPINE
     Indication: Muscle spasms
     Dosage: 300 MILLIGRAM, DAILY (300MG ONE TABLET DAILY)
     Route: 048
     Dates: start: 202506, end: 20250804
  5. AMILORIDE [Suspect]
     Active Substance: AMILORIDE
     Indication: Joint swelling
     Dosage: 5 MILLIGRAM, ONCE A DAY (TABLET)
     Route: 048
     Dates: end: 20250711
  6. NITROFURANTOIN [Suspect]
     Active Substance: NITROFURANTOIN
     Indication: Cystitis
     Dosage: UNK, 100 UNK
     Route: 065
  7. QUININE [Concomitant]
     Active Substance: QUININE
     Indication: Muscle spasms
     Dosage: TABLET
     Route: 048
     Dates: start: 2025
  8. ATORVASTATIN [Concomitant]
     Active Substance: ATORVASTATIN
     Indication: Product used for unknown indication
     Dosage: UNK
     Route: 048
  9. CLOPIDOGREL [Concomitant]
     Active Substance: CLOPIDOGREL BISULFATE
     Indication: Transient ischaemic attack
     Dosage: UNK
     Route: 048
     Dates: end: 202507
  10. CLOPIDOGREL [Concomitant]
     Active Substance: CLOPIDOGREL BISULFATE
     Dosage: UNK
     Route: 048
     Dates: start: 20250710
  11. EZETIMIBE [Concomitant]
     Active Substance: EZETIMIBE
     Indication: Product used for unknown indication
     Dosage: UNK
     Route: 048
  12. LANSOPRAZOLE [Concomitant]
     Active Substance: LANSOPRAZOLE
     Indication: Product used for unknown indication
     Dosage: UNK
     Route: 048
  13. METFORMIN [Concomitant]
     Active Substance: METFORMIN HYDROCHLORIDE
     Indication: Diabetes mellitus
     Dosage: 850 MILLIGRAM, 3 TIMES A DAY
     Route: 048
  14. Selexid [Concomitant]
     Indication: Cystitis
     Dosage: 200 MILLIGRAM
     Route: 065

REACTIONS (11)
  - Altered state of consciousness [Recovered/Resolved]
  - Dysarthria [Recovered/Resolved]
  - Asthenia [Recovered/Resolved]
  - Hypotension [Recovered/Resolved]
  - Agitation [Recovered/Resolved]
  - Withdrawal syndrome [Recovering/Resolving]
  - Product dispensing error [Recovered/Resolved]
  - Product name confusion [Recovered/Resolved]
  - Wrong product administered [Recovered/Resolved]
  - Drug interaction [Recovered/Resolved]
  - Product label confusion [Recovered/Resolved]

NARRATIVE: CASE EVENT DATE: 20250601
